FAERS Safety Report 4319631-2 (Version None)
Quarter: 2004Q1

REPORT INFORMATION
  Report Type: 
  Country: None (occurrence: None)
  Receive Date: 20040316
  Receipt Date: 20040304
  Transmission Date: 20041129
  Serious: Yes (Death, Hospitalization)
  Sender: FDA-Public Use
  Company Number: 163-20785-04030125

PATIENT
  Sex: 0

DRUGS (1)
  1. THALOMID [Suspect]
     Indication: METASTASES TO CENTRAL NERVOUS SYSTEM
     Dosage: QD, ORAL
     Route: 048
     Dates: end: 20040204

REACTIONS (1)
  - CONVULSION [None]
